FAERS Safety Report 6306773-5 (Version None)
Quarter: 2009Q3

REPORT INFORMATION
  Report Type: 
  Country: None (occurrence: None)
  Receive Date: 20090811
  Receipt Date: 20090811
  Transmission Date: 20100115
  Serious: Yes (Other)
  Sender: FDA-Public Use
  Company Number: None

PATIENT
  Age: 29 Year
  Sex: Female
  Weight: 83.9154 kg

DRUGS (2)
  1. YAZ [Suspect]
     Indication: POLYCYSTIC OVARIES
     Dosage: 1-3 MG PILL DAILY FOR 24 DAYS PO
     Route: 048
     Dates: start: 20090625, end: 20090807
  2. YAZ [Suspect]
     Dosage: 1- 0.02 MG PILL DAILY FOR 4 DAYS PO
     Route: 048

REACTIONS (15)
  - ANXIETY [None]
  - CHEST PAIN [None]
  - DEPRESSION [None]
  - DYSPNOEA [None]
  - EMOTIONAL DISORDER [None]
  - EYE IRRITATION [None]
  - EYE PRURITUS [None]
  - FEELING ABNORMAL [None]
  - HEADACHE [None]
  - LETHARGY [None]
  - LOSS OF LIBIDO [None]
  - MALAISE [None]
  - MIGRAINE [None]
  - MOOD SWINGS [None]
  - MUSCLE SPASMS [None]
